FAERS Safety Report 16255946 (Version 1)
Quarter: 2019Q2

REPORT INFORMATION
  Report Type: Spontaneous
  Country: AT (occurrence: AT)
  Receive Date: 20190430
  Receipt Date: 20190430
  Transmission Date: 20190711
  Serious: Yes (Other)
  Sender: FDA-Public Use
  Company Number: AT-TEVA-2019-AT-1043646

PATIENT
  Age: 8 Decade
  Sex: Male

DRUGS (6)
  1. LEUCOVORIN. [Suspect]
     Active Substance: LEUCOVORIN
     Dosage: ON DAY 1 OF THE CHEMOTHERAPY CYCLES AS PER THE FLOT PROTOCOL; RECEIVED FOUR CYCLES
     Route: 065
     Dates: start: 2017
  2. DOCETAXEL. [Suspect]
     Active Substance: DOCETAXEL
     Indication: CHEMOTHERAPY
     Dosage: ON DAY 1 OF THE CHEMOTHERAPY CYCLES AS PER THE FLOT PROTOCOL; RECEIVED FOUR CYCLES
     Route: 065
     Dates: start: 2017
  3. FLUOROURACIL. [Suspect]
     Active Substance: FLUOROURACIL
     Indication: CHEMOTHERAPY
     Dosage: ON DAY 1 OF THE CHEMOTHERAPY CYCLES AS PER THE FLOT PROTOCOL; RECEIVED FOUR CYCLES
     Route: 050
     Dates: start: 2017
  4. PEMBROLIZUMAB. [Suspect]
     Active Substance: PEMBROLIZUMAB
     Indication: OESOPHAGEAL CARCINOMA
     Route: 065
     Dates: start: 2018
  5. OXALIPLATIN. [Suspect]
     Active Substance: OXALIPLATIN
     Indication: CHEMOTHERAPY
     Dosage: ON DAY 1 OF THE CHEMOTHERAPY CYCLES AS PER THE FLOT PROTOCOL; RECEIVED FOUR CYCLES
     Route: 065
     Dates: start: 2017
  6. PEMBROLIZUMAB. [Suspect]
     Active Substance: PEMBROLIZUMAB
     Indication: METASTASES TO LUNG

REACTIONS (5)
  - Cholangitis [Recovering/Resolving]
  - Pneumonitis [Recovering/Resolving]
  - Infection [Unknown]
  - Diarrhoea [Unknown]
  - Drug ineffective [Unknown]
